FAERS Safety Report 17722266 (Version 3)
Quarter: 2020Q2

REPORT INFORMATION
  Report Type: Spontaneous
  Country: CA (occurrence: CA)
  Receive Date: 20200429
  Receipt Date: 20200616
  Transmission Date: 20200714
  Serious: Yes (Hospitalization)
  Sender: FDA-Public Use
  Company Number: CA-ROCHE-2588247

PATIENT
  Age: 42 Year
  Sex: Female
  Weight: 113 kg

DRUGS (33)
  1. ACTEMRA [Suspect]
     Active Substance: TOCILIZUMAB
     Route: 042
  2. AVAPRO [Concomitant]
     Active Substance: IRBESARTAN
     Indication: PRODUCT USED FOR UNKNOWN INDICATION
  3. CLONAZEPAM. [Concomitant]
     Active Substance: CLONAZEPAM
     Indication: PRODUCT USED FOR UNKNOWN INDICATION
     Route: 065
  4. ACTEMRA [Suspect]
     Active Substance: TOCILIZUMAB
     Route: 042
  5. AMOXICILINA [AMOXICILLIN] [Suspect]
     Active Substance: AMOXICILLIN
     Route: 042
  6. AMOXICILINA [AMOXICILLIN] [Suspect]
     Active Substance: AMOXICILLIN
     Route: 042
  7. AMOXICILINA [AMOXICILLIN] [Suspect]
     Active Substance: AMOXICILLIN
     Route: 042
  8. DICLOFENAC [Suspect]
     Active Substance: DICLOFENAC
     Route: 042
  9. PANTOLOC [PANTOPRAZOLE] [Concomitant]
     Active Substance: PANTOPRAZOLE SODIUM
     Indication: PRODUCT USED FOR UNKNOWN INDICATION
  10. ACTEMRA [Suspect]
     Active Substance: TOCILIZUMAB
     Route: 042
  11. AMOXICILINA [AMOXICILLIN] [Suspect]
     Active Substance: AMOXICILLIN
     Route: 042
  12. DICLOFENAC [Suspect]
     Active Substance: DICLOFENAC
     Indication: RHEUMATOID ARTHRITIS
     Route: 042
  13. ACTEMRA [Suspect]
     Active Substance: TOCILIZUMAB
     Route: 042
  14. AMOXICILINA [AMOXICILLIN] [Suspect]
     Active Substance: AMOXICILLIN
     Indication: RHEUMATOID ARTHRITIS
     Route: 042
  15. DICLOFENAC [Suspect]
     Active Substance: DICLOFENAC
     Route: 042
  16. AMOXICILINA [AMOXICILLIN] [Suspect]
     Active Substance: AMOXICILLIN
     Route: 042
  17. DICLOFENAC [Suspect]
     Active Substance: DICLOFENAC
     Route: 042
  18. ORENCIA [Suspect]
     Active Substance: ABATACEPT
     Route: 042
  19. ORENCIA [Suspect]
     Active Substance: ABATACEPT
     Route: 042
  20. DILTIAZEM. [Concomitant]
     Active Substance: DILTIAZEM
     Indication: PRODUCT USED FOR UNKNOWN INDICATION
  21. ATORVASTATIN [Concomitant]
     Active Substance: ATORVASTATIN
  22. CIPRALEX [Concomitant]
     Active Substance: ESCITALOPRAM OXALATE
  23. ACTEMRA [Suspect]
     Active Substance: TOCILIZUMAB
     Route: 042
  24. DICLOFENAC [Suspect]
     Active Substance: DICLOFENAC
     Route: 065
  25. ORENCIA [Suspect]
     Active Substance: ABATACEPT
     Indication: RHEUMATOID ARTHRITIS
     Route: 042
  26. ORENCIA [Suspect]
     Active Substance: ABATACEPT
     Route: 042
  27. AMOXICILLIN TRIHYDRATE [Suspect]
     Active Substance: AMOXICILLIN
     Indication: TYMPANIC MEMBRANE PERFORATION
     Route: 065
  28. ARAVA [Concomitant]
     Active Substance: LEFLUNOMIDE
     Indication: PRODUCT USED FOR UNKNOWN INDICATION
  29. CITALOPRAM [Concomitant]
     Active Substance: CITALOPRAM HYDROBROMIDE
  30. ACTEMRA [Suspect]
     Active Substance: TOCILIZUMAB
     Indication: RHEUMATOID ARTHRITIS
     Route: 042
  31. DICLOFENAC [Suspect]
     Active Substance: DICLOFENAC
     Route: 042
  32. ORENCIA [Suspect]
     Active Substance: ABATACEPT
     Route: 042
  33. AMOXICILLIN TRIHYDRATE [Suspect]
     Active Substance: AMOXICILLIN
     Indication: SINUSITIS

REACTIONS (66)
  - Bone swelling [Not Recovered/Not Resolved]
  - Ear infection [Not Recovered/Not Resolved]
  - Infusion related reaction [Not Recovered/Not Resolved]
  - Pneumonia [Not Recovered/Not Resolved]
  - Skin infection [Not Recovered/Not Resolved]
  - Urinary tract infection [Not Recovered/Not Resolved]
  - Weight increased [Not Recovered/Not Resolved]
  - Malaise [Not Recovered/Not Resolved]
  - Dizziness [Not Recovered/Not Resolved]
  - Paranasal sinus discomfort [Not Recovered/Not Resolved]
  - Parotid gland enlargement [Not Recovered/Not Resolved]
  - Pyrexia [Not Recovered/Not Resolved]
  - Rhinorrhoea [Not Recovered/Not Resolved]
  - Road traffic accident [Not Recovered/Not Resolved]
  - Thermal burn [Not Recovered/Not Resolved]
  - Arthrodesis [Not Recovered/Not Resolved]
  - Blood pressure systolic increased [Not Recovered/Not Resolved]
  - Heart rate decreased [Not Recovered/Not Resolved]
  - Incision site haemorrhage [Not Recovered/Not Resolved]
  - Investigation abnormal [Not Recovered/Not Resolved]
  - Off label use [Unknown]
  - Oxygen saturation decreased [Not Recovered/Not Resolved]
  - Cystitis [Not Recovered/Not Resolved]
  - Ligament sprain [Not Recovered/Not Resolved]
  - Myalgia [Not Recovered/Not Resolved]
  - Tympanic membrane perforation [Not Recovered/Not Resolved]
  - Urticaria [Not Recovered/Not Resolved]
  - Weight abnormal [Not Recovered/Not Resolved]
  - Hydronephrosis [Not Recovered/Not Resolved]
  - Blood pressure inadequately controlled [Not Recovered/Not Resolved]
  - Blood urine present [Not Recovered/Not Resolved]
  - Conjunctivitis [Not Recovered/Not Resolved]
  - Dysphonia [Not Recovered/Not Resolved]
  - Infected bite [Not Recovered/Not Resolved]
  - Nasal congestion [Not Recovered/Not Resolved]
  - Spinal pain [Not Recovered/Not Resolved]
  - Respiratory rate increased [Not Recovered/Not Resolved]
  - Arthropod bite [Not Recovered/Not Resolved]
  - Blood pressure increased [Not Recovered/Not Resolved]
  - Bronchial hyperreactivity [Not Recovered/Not Resolved]
  - Contraindicated product administered [Not Recovered/Not Resolved]
  - Headache [Not Recovered/Not Resolved]
  - Hepatic steatosis [Not Recovered/Not Resolved]
  - Neck pain [Not Recovered/Not Resolved]
  - Sinusitis [Not Recovered/Not Resolved]
  - Somnolence [Not Recovered/Not Resolved]
  - Weight decreased [Not Recovered/Not Resolved]
  - Sebaceous gland infection [Not Recovered/Not Resolved]
  - Skin reaction [Not Recovered/Not Resolved]
  - Arthralgia [Not Recovered/Not Resolved]
  - Cellulitis [Not Recovered/Not Resolved]
  - Decubitus ulcer [Not Recovered/Not Resolved]
  - Psoriasis [Not Recovered/Not Resolved]
  - Skin swelling [Not Recovered/Not Resolved]
  - Ureteric obstruction [Not Recovered/Not Resolved]
  - Urinary tract obstruction [Not Recovered/Not Resolved]
  - Fibrous histiocytoma [Not Recovered/Not Resolved]
  - Hepatic enzyme increased [Not Recovered/Not Resolved]
  - Hypertension [Not Recovered/Not Resolved]
  - Nasopharyngitis [Not Recovered/Not Resolved]
  - Nephrolithiasis [Not Recovered/Not Resolved]
  - Poor venous access [Not Recovered/Not Resolved]
  - Tinnitus [Not Recovered/Not Resolved]
  - Dehydration [Not Recovered/Not Resolved]
  - Musculoskeletal chest pain [Not Recovered/Not Resolved]
  - Therapy non-responder [Not Recovered/Not Resolved]
